FAERS Safety Report 6030217-4 (Version None)
Quarter: 2009Q1

REPORT INFORMATION
  Report Type: 
  Country: None (occurrence: None)
  Receive Date: 20090107
  Receipt Date: 20081226
  Transmission Date: 20090719
  Serious: Yes (Other)
  Sender: FDA-Public Use
  Company Number: JP-ROCHE-585323

PATIENT
  Sex: Female
  Weight: 33 kg

DRUGS (7)
  1. XELODA [Suspect]
     Indication: COLON CANCER METASTATIC
     Dosage: DRUG: XELODA 300,600 MG IN MORNING,900 MG IN EVENING,3 WEEKS FOLLOWED BY 1 WEEK REST, STOP DATE:2008
     Route: 048
     Dates: start: 20080724
  2. XELODA [Suspect]
     Route: 048
     Dates: start: 20080911, end: 20081117
  3. PREDONINE [Suspect]
     Indication: INFLAMMATION
     Route: 048
     Dates: start: 20080620, end: 20080911
  4. PREDONINE [Suspect]
     Dosage: DOSE DECREASED
     Route: 048
     Dates: start: 20080912
  5. MUCOSTA [Concomitant]
     Route: 048
     Dates: start: 20080620
  6. MAGNESIUM OXIDE [Concomitant]
     Route: 048
     Dates: start: 20080807
  7. ZOMETA [Concomitant]
     Indication: HYPERCALCAEMIA
     Dosage: FORM: INTRAVENOUS (NOT OTHERWISE SPECIFIED)
     Route: 042
     Dates: start: 20080710

REACTIONS (3)
  - GENITAL HAEMORRHAGE [None]
  - PALMAR-PLANTAR ERYTHRODYSAESTHESIA SYNDROME [None]
  - STRABISMUS [None]
